FAERS Safety Report 15955039 (Version 1)
Quarter: 2019Q1

REPORT INFORMATION
  Report Type: Spontaneous
  Country: US (occurrence: US)
  Receive Date: 20190213
  Receipt Date: 20190213
  Transmission Date: 20190417
  Serious: Yes (Other)
  Sender: FDA-Public Use
  Company Number: US-PFIZER INC-2019063475

PATIENT
  Age: 60 Year
  Sex: Female

DRUGS (2)
  1. SERTRALINE HCL [Suspect]
     Active Substance: SERTRALINE HYDROCHLORIDE
     Indication: DEPRESSION
  2. SERTRALINE HCL [Suspect]
     Active Substance: SERTRALINE HYDROCHLORIDE
     Indication: PANIC ATTACK
     Dosage: UNK

REACTIONS (6)
  - Feeling abnormal [Unknown]
  - Suicidal ideation [Unknown]
  - Dyskinesia [Unknown]
  - Drug ineffective [Unknown]
  - Anxiety [Unknown]
  - Crying [Unknown]
